FAERS Safety Report 5410686-0 (Version None)
Quarter: 2007Q3

REPORT INFORMATION
  Report Type: 
  Country: None (occurrence: None)
  Receive Date: 20070810
  Receipt Date: 20070605
  Transmission Date: 20080115
  Serious: No
  Sender: FDA-Public Use
  Company Number: A0654262A

PATIENT
  Age: 25 Year
  Sex: Female

DRUGS (9)
  1. PAXIL [Suspect]
     Route: 048
     Dates: start: 20000101
  2. PAXIL CR [Suspect]
     Dosage: 37.5MG PER DAY
     Route: 048
     Dates: start: 20000101
  3. LITHIUM CARBONATE [Concomitant]
  4. ACIPHEX [Concomitant]
  5. PREVACID [Concomitant]
  6. MULTI-VITAMIN [Concomitant]
  7. SEROQUEL [Concomitant]
  8. LAXATIVE [Concomitant]
  9. DIET MEDICATION [Concomitant]

REACTIONS (10)
  - DELIVERY [None]
  - DISCOMFORT [None]
  - DIZZINESS [None]
  - DRUG WITHDRAWAL SYNDROME [None]
  - HEADACHE [None]
  - HYPERACUSIS [None]
  - MIGRAINE [None]
  - NAUSEA [None]
  - PARAESTHESIA [None]
  - PHOTOSENSITIVITY REACTION [None]
